FAERS Safety Report 15157222 (Version 1)
Quarter: 2018Q3

REPORT INFORMATION
  Report Type: Report from Study
  Country: ES (occurrence: ES)
  Receive Date: 20180718
  Receipt Date: 20180718
  Transmission Date: 20181010
  Serious: Yes (Hospitalization)
  Sender: FDA-Public Use
  Company Number: ES-TEVA-2018-ES-928166

PATIENT
  Age: 59 Year
  Sex: Male

DRUGS (3)
  1. METILPREDNISOLONA [Suspect]
     Active Substance: METHYLPREDNISOLONE
     Indication: RENAL TRANSPLANT
     Dosage: SP
     Route: 042
     Dates: start: 20170208
  2. BASILIXIMAB [Suspect]
     Active Substance: BASILIXIMAB
     Indication: RENAL TRANSPLANT
     Dosage: 20 MILLIGRAM DAILY; 20 MG
     Route: 042
     Dates: start: 20170208, end: 20170213
  3. IMMUNOGLOBULINA NATITIMOCITICA DE CONEJO [Suspect]
     Active Substance: LAPINE T-LYMPHOCYTE IMMUNE GLOBULIN
     Indication: RENAL TRANSPLANT
     Dosage: 75 MILLIGRAM DAILY; 75 MG
     Route: 042
     Dates: start: 20170208, end: 20170208

REACTIONS (1)
  - Pancreatitis acute [Recovered/Resolved]

NARRATIVE: CASE EVENT DATE: 20170209
